FAERS Safety Report 21416296 (Version 1)
Quarter: 2022Q4

REPORT INFORMATION
  Report Type: Spontaneous
  Country: RS (occurrence: None)
  Receive Date: 20221006
  Receipt Date: 20221006
  Transmission Date: 20230113
  Serious: Yes (Life-Threatening)
  Sender: FDA-Public Use
  Company Number: 2022A339433

PATIENT
  Sex: Female

DRUGS (1)
  1. IMFINZI [Suspect]
     Active Substance: DURVALUMAB
     Indication: Small cell lung cancer
     Dosage: 1500.0MG UNKNOWN
     Route: 042

REACTIONS (3)
  - Infectious pleural effusion [Recovering/Resolving]
  - Pancytopenia [Recovering/Resolving]
  - Febrile neutropenia [Recovering/Resolving]
